FAERS Safety Report 4756581-1 (Version None)
Quarter: 2005Q3

REPORT INFORMATION
  Report Type: 
  Country: None (occurrence: None)
  Receive Date: 20050830
  Receipt Date: 20050815
  Transmission Date: 20060218
  Serious: Yes (Death, Life-Threatening, Hospitalization)
  Sender: FDA-Public Use
  Company Number: PH-MERCK-0508PHL00012

PATIENT
  Age: 78 Year
  Sex: Male

DRUGS (1)
  1. ZETIA [Suspect]
     Route: 048
     Dates: start: 20050301

REACTIONS (1)
  - ANEURYSM [None]
